FAERS Safety Report 7523565-X (Version None)
Quarter: 2011Q2

REPORT INFORMATION
  Report Type: 
  Country: None (occurrence: None)
  Receive Date: 20110603
  Receipt Date: 20110512
  Transmission Date: 20111010
  Serious: Yes (Hospitalization)
  Sender: FDA-Public Use
  Company Number: FR-PFIZER INC-2011095484

PATIENT
  Age: 44 Year
  Sex: Male

DRUGS (3)
  1. SIROLIMUS [Suspect]
     Indication: IMMUNOSUPPRESSION
     Dosage: UNK
     Dates: start: 20070701, end: 20071008
  2. TACROLIMUS [Suspect]
     Dosage: 1 MG, 2X/DAY
     Dates: start: 20071017
  3. TACROLIMUS [Suspect]
     Indication: IMMUNOSUPPRESSION
     Dosage: 4 MG, 1X/DAY
     Route: 048
     Dates: start: 20071008, end: 20071016

REACTIONS (4)
  - RENAL FAILURE [None]
  - BLOOD CREATININE INCREASED [None]
  - BIOPSY KIDNEY ABNORMAL [None]
  - FOLLICULITIS [None]
